FAERS Safety Report 8834696 (Version 1)
Quarter: 2012Q4

REPORT INFORMATION
  Report Type: 
  Country: US (occurrence: US)
  Receive Date: 20121010
  Receipt Date: 20121010
  Transmission Date: 20130627
  Serious: Yes (Hospitalization, Other)
  Sender: FDA-Public Use
  Company Number: US-ROCHE-795634

PATIENT
  Age: 21 None
  Sex: Male
  Weight: 58.11 kg

DRUGS (2)
  1. ACCUTANE [Suspect]
     Indication: ACNE
     Route: 065
     Dates: start: 1987, end: 1990
  2. ACCUTANE [Suspect]
     Indication: DERMATOMYOSITIS

REACTIONS (6)
  - Colitis ulcerative [Unknown]
  - Gastrointestinal haemorrhage [Unknown]
  - Inflammatory bowel disease [Unknown]
  - Bipolar I disorder [Unknown]
  - Abdominal pain [Unknown]
  - Rectal haemorrhage [Unknown]
